FAERS Safety Report 14656348 (Version 2)
Quarter: 2018Q1

REPORT INFORMATION
  Report Type: Report from Study
  Country: US (occurrence: US)
  Receive Date: 20180319
  Receipt Date: 20180326
  Transmission Date: 20180509
  Serious: Yes (Hospitalization)
  Sender: FDA-Public Use
  Company Number: US-PFIZER INC-2018108435

PATIENT
  Age: 15 Year
  Sex: Female
  Weight: 54.9 kg

DRUGS (9)
  1. DOXORUBICIN HCL [Suspect]
     Active Substance: DOXORUBICIN HYDROCHLORIDE
     Indication: HODGKIN^S DISEASE
     Dosage: 25 MG/M2/DOSE, OVER 1-5 MIN OR BY INTERMITTENT INFUSION OVER 1-15 MIN ON DAYS 1 AND 2
     Route: 040
     Dates: start: 20170923
  2. BRENTUXIMAB VEDOTIN RECOMBINANT [Suspect]
     Active Substance: BRENTUXIMAB VEDOTIN
     Indication: HODGKIN^S DISEASE
     Dosage: 1.8 MG/KG/DOSE (MAX DOSE IS 180 MG) OVER 30 MIN ON DAY 1
     Route: 042
     Dates: start: 20170923
  3. ATIVAN [Concomitant]
     Active Substance: LORAZEPAM
     Indication: NAUSEA
     Dosage: 2 MG, Q4HRS PRN
     Route: 048
     Dates: start: 20170925, end: 20171017
  4. RANITIDINE. [Concomitant]
     Active Substance: RANITIDINE
     Indication: DYSPEPSIA
     Dosage: 150 MG, BID
     Route: 048
     Dates: start: 20170925, end: 20171017
  5. VINCRISTINE SULFATE. [Suspect]
     Active Substance: VINCRISTINE SULFATE
     Indication: HODGKIN^S DISEASE
     Dosage: 1.4 MG/M2 (MAX DOSE 2.8 MG) IV PUSH OVER 1 MIN OR INFUSION ON DAY 8
     Route: 042
     Dates: start: 20170929
  6. VP-16 [Suspect]
     Active Substance: ETOPOSIDE
     Indication: HODGKIN^S DISEASE
     Dosage: 125 MG/M2/DOSE, OVER 60-120 MIN ON DAYS 1-3
     Route: 042
     Dates: start: 20170923
  7. PREDNISONE. [Suspect]
     Active Substance: PREDNISONE
     Indication: HODGKIN^S DISEASE
     Dosage: 20 MG/M2/DOSE, BID ON DAYS 1-7
     Route: 048
     Dates: start: 20170924
  8. CYCLOPHOSPHAMIDE. [Suspect]
     Active Substance: CYCLOPHOSPHAMIDE
     Indication: HODGKIN^S DISEASE
     Dosage: 600 MG/M2/DOSE, OVER 30-60 MIN ON DAYS 1-2
     Route: 042
     Dates: start: 20170923
  9. NEUPOGEN [Concomitant]
     Active Substance: FILGRASTIM
     Indication: NEUTROPENIA
     Dosage: 300 MCG/ML, QD FOR 14 DAYS
     Route: 058
     Dates: start: 20170926, end: 20171010

REACTIONS (2)
  - Dizziness [Recovered/Resolved]
  - Febrile neutropenia [Recovered/Resolved]

NARRATIVE: CASE EVENT DATE: 20171001
